FAERS Safety Report 8817539 (Version 1)
Quarter: 2012Q4

REPORT INFORMATION
  Report Type: 
  Country: JP (occurrence: JP)
  Receive Date: 20121004
  Receipt Date: 20121004
  Transmission Date: 20130627
  Serious: Yes (Death, Hospitalization, Disabling, Other)
  Sender: FDA-Public Use
  Company Number: JP-ROCHE-1137292

PATIENT
  Age: 71 Year
  Sex: Male
  Weight: 64 kg

DRUGS (8)
  1. XELODA [Suspect]
     Indication: RECTAL CANCER METASTATIC
     Dosage: It is administer/one weekly holiday medicine for two weeks.
     Route: 048
     Dates: start: 20100305, end: 20100611
  2. AVASTIN [Suspect]
     Indication: RECTAL CANCER METASTATIC
     Route: 041
     Dates: start: 20100326, end: 20100528
  3. ELPLAT [Suspect]
     Indication: RECTAL CANCER METASTATIC
     Route: 041
     Dates: start: 20100326, end: 20100528
  4. AMARYL [Concomitant]
     Indication: DIABETES MELLITUS
     Route: 048
     Dates: start: 20100416
  5. ACTOS [Concomitant]
     Indication: DIABETES MELLITUS
     Route: 048
     Dates: start: 20100416
  6. ADALAT CR [Concomitant]
     Indication: HYPERTENSION
     Route: 048
     Dates: start: 20100416
  7. BLOPRESS [Concomitant]
     Indication: HYPERTENSION
     Route: 048
     Dates: start: 20100416
  8. LASIX [Concomitant]
     Indication: HYPERTENSION
     Route: 048
     Dates: start: 20100416

REACTIONS (12)
  - Disease progression [Fatal]
  - Necrotising fasciitis [Recovered/Resolved with Sequelae]
  - Catheter site infection [Unknown]
  - Infection reactivation [Unknown]
  - Sepsis [Unknown]
  - Urinary tract infection [Unknown]
  - Catheter site infection [Unknown]
  - Neutrophil count decreased [Unknown]
  - Gangrene [Unknown]
  - Septic shock [Unknown]
  - Pyrexia [Unknown]
  - Gastric ulcer [Unknown]
